FAERS Safety Report 4337619-2 (Version None)
Quarter: 2004Q2

REPORT INFORMATION
  Report Type: 
  Country: None (occurrence: None)
  Receive Date: 20040413
  Receipt Date: 20030811
  Transmission Date: 20050107
  Serious: No
  Sender: FDA-Public Use
  Company Number: US-GLAXOSMITHKLINE-A0420589A

PATIENT
  Sex: Male

DRUGS (1)
  1. DEXEDRINE [Suspect]

REACTIONS (3)
  - DECREASED ACTIVITY [None]
  - DIZZINESS [None]
  - INSOMNIA [None]
